FAERS Safety Report 10133375 (Version 1)
Quarter: 2014Q2

REPORT INFORMATION
  Report Type: Spontaneous
  Country: US (occurrence: US)
  Receive Date: 20140428
  Receipt Date: 20140428
  Transmission Date: 20141212
  Serious: No
  Sender: FDA-Public Use
  Company Number: US-PFIZER INC-2014115740

PATIENT
  Age: 50 Year
  Sex: Female
  Weight: 63.49 kg

DRUGS (4)
  1. LYRICA [Suspect]
     Indication: FIBROMYALGIA
     Dosage: UNK, 2X/DAY (ELABORATED AS 75 MG IN THE MORNING AND 150 MG AT NIGHT)
     Dates: start: 2007, end: 201404
  2. ENBREL [Concomitant]
     Indication: ANKYLOSING SPONDYLITIS
     Dosage: UNK
  3. TRAMADOL [Concomitant]
     Dosage: UNK
  4. SINGULAIR [Concomitant]
     Indication: ASTHMA
     Dosage: UNK

REACTIONS (2)
  - Pain [Unknown]
  - Malaise [Unknown]
